FAERS Safety Report 9709303 (Version 2)
Quarter: 2014Q2

REPORT INFORMATION
  Report Type: Other
  Country: JP (occurrence: JP)
  Receive Date: 20131125
  Receipt Date: 20140624
  Transmission Date: 20141212
  Serious: Yes (Death)
  Sender: FDA-Public Use
  Company Number: JP-ACTELION-A-CH2013-91431

PATIENT
  Age: 50 Year
  Sex: Female

DRUGS (3)
  1. TRACLEER [Suspect]
     Indication: PULMONARY ARTERIAL HYPERTENSION
     Route: 048
  2. BERAPROST [Concomitant]
  3. SILDENAFIL [Concomitant]

REACTIONS (5)
  - Generalised oedema [Fatal]
  - General physical health deterioration [Fatal]
  - Concomitant disease aggravated [Fatal]
  - Adverse reaction [Unknown]
  - Hepatic function abnormal [Recovered/Resolved]
